FAERS Safety Report 19364275 (Version 2)
Quarter: 2021Q2

REPORT INFORMATION
  Report Type: Spontaneous
  Country: US (occurrence: US)
  Receive Date: 20210602
  Receipt Date: 20210615
  Transmission Date: 20210717
  Serious: Yes (Hospitalization)
  Sender: FDA-Public Use
  Company Number: US-INTRA-CELLULAR THERAPIES, INC.-2021ICT00244

PATIENT
  Sex: Male
  Weight: 57.14 kg

DRUGS (6)
  1. LAMICTAL [Concomitant]
     Active Substance: LAMOTRIGINE
     Dosage: 100 MG, 1X/DAY
  2. KLONOPIN [Concomitant]
     Active Substance: CLONAZEPAM
     Dosage: 0.5 MG, 2X/DAY, AS NEEDED
  3. TRAZODONE [Concomitant]
     Active Substance: TRAZODONE HYDROCHLORIDE
     Dosage: 100 MG TO 150 MG DAILY AT BEDTIME
  4. CAPLYTA [Suspect]
     Active Substance: LUMATEPERONE
     Indication: SCHIZOPHRENIA
     Dosage: 42 MG, 1X/DAY
     Route: 048
     Dates: start: 20201124, end: 20210414
  5. CAPLYTA [Suspect]
     Active Substance: LUMATEPERONE
     Indication: BIPOLAR I DISORDER
  6. HYDROXYZINE [Concomitant]
     Active Substance: HYDROXYZINE HYDROCHLORIDE
     Dosage: 50 MG, 3X/DAY, AS NEEDED

REACTIONS (4)
  - Suicidal ideation [Unknown]
  - Suicide attempt [Unknown]
  - Performance status decreased [Unknown]
  - Intentional overdose [Unknown]
